FAERS Safety Report 8162064 (Version 9)
Quarter: 2016Q2

REPORT INFORMATION
  Report Type: Spontaneous
  Country: US (occurrence: US)
  Receive Date: 20110929
  Receipt Date: 20160408
  Transmission Date: 20160815
  Serious: Yes (Hospitalization, Disabling, Other)
  Sender: FDA-Public Use
  Company Number: US-MERCK-1109USA03017

PATIENT
  Sex: Female
  Weight: 79.37 kg

DRUGS (8)
  1. ALENDRONATE SODIUM. [Suspect]
     Active Substance: ALENDRONATE SODIUM
     Indication: OSTEOPENIA
  2. VITAMINS (UNSPECIFIED) [Concomitant]
     Active Substance: VITAMINS
     Indication: ROUTINE HEALTH MAINTENANCE
     Dosage: 1 DF, QD
     Route: 065
     Dates: start: 1995
  3. CALCIUM (UNSPECIFIED) (+) VITAMIN D (UNSPECIFIED) [Concomitant]
     Active Substance: CALCIUM CARBONATE\VITAMIN D
     Indication: ROUTINE HEALTH MAINTENANCE
     Dosage: 630/400MG TWICE A DAY
     Route: 048
     Dates: start: 1995
  4. CENTRUM SILVER [Concomitant]
     Active Substance: MINERALS\VITAMINS
     Indication: ROUTINE HEALTH MAINTENANCE
     Dosage: 1 DF, QD
     Route: 048
     Dates: start: 1995
  5. ALENDRONATE SODIUM. [Suspect]
     Active Substance: ALENDRONATE SODIUM
     Indication: BONE DENSITY DECREASED
     Dosage: 70 MG, QW
     Route: 048
     Dates: start: 20080910, end: 20090926
  6. FOSAMAX [Suspect]
     Active Substance: ALENDRONATE SODIUM
     Indication: OSTEOPENIA
  7. FOSAMAX [Suspect]
     Active Substance: ALENDRONATE SODIUM
     Indication: BONE DENSITY DECREASED
  8. FOSAMAX [Suspect]
     Active Substance: ALENDRONATE SODIUM
     Indication: OSTEOPOROSIS
     Dosage: 70 MG, QW
     Route: 048
     Dates: start: 2002, end: 20080910

REACTIONS (60)
  - Meniscus injury [Unknown]
  - Hypertension [Unknown]
  - Urinary tract infection [Unknown]
  - Arthroscopy [Unknown]
  - Hot flush [Unknown]
  - Trigger finger [Unknown]
  - Fracture nonunion [Recovered/Resolved]
  - Blood cholesterol increased [Unknown]
  - Hypokalaemia [Unknown]
  - Oesophagitis [Not Recovered/Not Resolved]
  - Arthralgia [Unknown]
  - Fear of falling [Unknown]
  - Gait disturbance [Unknown]
  - Seasonal allergy [Unknown]
  - Chronic kidney disease [Unknown]
  - Femur fracture [Recovered/Resolved]
  - Knee operation [Unknown]
  - Cough [Unknown]
  - Spinal osteoarthritis [Unknown]
  - Gastrooesophageal reflux disease [Unknown]
  - Arthralgia [Unknown]
  - Drug hypersensitivity [Unknown]
  - Foot fracture [Unknown]
  - Osteoarthritis [Unknown]
  - Rib fracture [Unknown]
  - Bursitis [Unknown]
  - Arthritis [Unknown]
  - Hyperhidrosis [Unknown]
  - Frustration tolerance decreased [Unknown]
  - Anxiety [Unknown]
  - Thyroid operation [Unknown]
  - Disability [Not Recovered/Not Resolved]
  - Osteoarthritis [Unknown]
  - Bursitis [Unknown]
  - Drug ineffective [Unknown]
  - Rash [Recovered/Resolved]
  - Arthralgia [Unknown]
  - Pain in extremity [Unknown]
  - Back pain [Unknown]
  - Adjustment disorder with depressed mood [Unknown]
  - Neck pain [Unknown]
  - Weight increased [Unknown]
  - Osteonecrosis [Recovered/Resolved]
  - Limb asymmetry [Unknown]
  - Rash [Unknown]
  - Scar [Unknown]
  - Cyst removal [Unknown]
  - Rhinorrhoea [Unknown]
  - Back pain [Unknown]
  - Muscular weakness [Unknown]
  - Drug ineffective [Unknown]
  - Arthralgia [Not Recovered/Not Resolved]
  - Nightmare [Unknown]
  - Osteoarthritis [Recovered/Resolved]
  - Knee operation [Unknown]
  - Rib fracture [Unknown]
  - Foreign body [Unknown]
  - Haemorrhagic anaemia [Unknown]
  - Musculoskeletal pain [Unknown]
  - Chest pain [Unknown]

NARRATIVE: CASE EVENT DATE: 200209
